FAERS Safety Report 9866391 (Version 2)
Quarter: 2014Q1

REPORT INFORMATION
  Report Type: Spontaneous
  Country: US (occurrence: US)
  Receive Date: 20140204
  Receipt Date: 20140210
  Transmission Date: 20141002
  Serious: Yes (Hospitalization)
  Sender: FDA-Public Use
  Company Number: US-ROCHE-1343615

PATIENT
  Sex: Male
  Weight: 79.45 kg

DRUGS (1)
  1. XELODA [Suspect]
     Indication: GASTRIC NEOPLASM
     Dosage: 3 TABS TWICE A DAY FOR 14DAYS
     Route: 048
     Dates: start: 20140102

REACTIONS (1)
  - Disease progression [Unknown]
